FAERS Safety Report 5874500-1 (Version None)
Quarter: 2008Q3

REPORT INFORMATION
  Report Type: 
  Country: None (occurrence: None)
  Receive Date: 20080909
  Receipt Date: 20080828
  Transmission Date: 20090109
  Serious: Yes (Other)
  Sender: FDA-Public Use
  Company Number: PHEH2008US07781

PATIENT
  Sex: Female

DRUGS (1)
  1. FOCALIN XR [Suspect]

REACTIONS (5)
  - ANXIETY [None]
  - HALLUCINATION, AUDITORY [None]
  - NIGHTMARE [None]
  - PANIC REACTION [None]
  - PSYCHOTIC DISORDER [None]
